FAERS Safety Report 4477551-7 (Version None)
Quarter: 2004Q4

REPORT INFORMATION
  Report Type: 
  Country: None (occurrence: None)
  Receive Date: 20041018
  Receipt Date: 20040315
  Transmission Date: 20050328
  Serious: Yes (Hospitalization, Other)
  Sender: FDA-Public Use
  Company Number: US-AMGEN-KDL069335

PATIENT
  Sex: Female
  Weight: 67.6 kg

DRUGS (6)
  1. EPOGEN [Suspect]
     Indication: RENAL FAILURE CHRONIC
     Route: 058
     Dates: start: 20021101
  2. PHOSLO [Concomitant]
  3. NORVASC [Concomitant]
  4. COUMADIN [Concomitant]
  5. AREDIA [Concomitant]
  6. CALCITRIOL [Concomitant]

REACTIONS (3)
  - BONE MARROW DEPRESSION [None]
  - DYSPNOEA [None]
  - THERAPEUTIC RESPONSE DECREASED [None]
